FAERS Safety Report 7953679-1 (Version None)
Quarter: 2011Q4

REPORT INFORMATION
  Report Type: 
  Country: None (occurrence: None)
  Receive Date: 20111202
  Receipt Date: 20111122
  Transmission Date: 20120403
  Serious: Yes (Hospitalization, Other)
  Sender: FDA-Public Use
  Company Number: US-JNJFOC-20110910094

PATIENT
  Sex: Male

DRUGS (4)
  1. PREDNISONE [Concomitant]
     Indication: COLITIS ULCERATIVE
     Route: 065
  2. REMICADE [Suspect]
     Indication: COLITIS ULCERATIVE
     Dosage: INITIATED APPROXIMATELY IN APRIL
     Route: 042
     Dates: start: 20110101, end: 20110601
  3. MERCAPTOPURINE [Suspect]
     Indication: COLITIS ULCERATIVE
     Route: 048
     Dates: start: 20110301, end: 20110601
  4. APRISO [Concomitant]
     Indication: COLITIS ULCERATIVE
     Route: 048
     Dates: start: 20101201, end: 20110601

REACTIONS (6)
  - FOLLICULITIS [None]
  - COLITIS ULCERATIVE [None]
  - RASH MACULO-PAPULAR [None]
  - ACNE [None]
  - JOINT SWELLING [None]
  - ERYTHEMA NODOSUM [None]
